FAERS Safety Report 16264751 (Version 1)
Quarter: 2019Q2

REPORT INFORMATION
  Report Type: Spontaneous
  Country: US (occurrence: US)
  Receive Date: 20190502
  Receipt Date: 20190502
  Transmission Date: 20190711
  Serious: No
  Sender: FDA-Public Use
  Company Number: US-PFIZER INC-2019183496

PATIENT
  Age: 55 Year
  Sex: Female
  Weight: 49.9 kg

DRUGS (1)
  1. REVATIO [Suspect]
     Active Substance: SILDENAFIL CITRATE
     Indication: SCLEROEDEMA
     Dosage: UNK, 2X/DAY
     Dates: start: 201902, end: 201904

REACTIONS (4)
  - Insomnia [Recovered/Resolved]
  - Product use in unapproved indication [Unknown]
  - Dizziness [Recovered/Resolved]
  - Hot flush [Recovered/Resolved]

NARRATIVE: CASE EVENT DATE: 201902
